FAERS Safety Report 23732284 (Version 1)
Quarter: 2024Q2

REPORT INFORMATION
  Report Type: Spontaneous
  Country: FR (occurrence: FR)
  Receive Date: 20240411
  Receipt Date: 20240411
  Transmission Date: 20240716
  Serious: Yes (Disabling)
  Sender: FDA-Public Use
  Company Number: None

PATIENT
  Age: 72 Year
  Sex: Male
  Weight: 72 kg

DRUGS (3)
  1. FLUCONAZOLE [Suspect]
     Active Substance: FLUCONAZOLE
     Indication: Cryptococcosis
     Dosage: 200 MG, 1X/DAY
     Route: 048
     Dates: start: 20220218
  2. IMBRUVICA [Suspect]
     Active Substance: IBRUTINIB
     Indication: Chronic lymphocytic leukaemia
     Dosage: 280 MG, 1X/DAY
     Route: 048
     Dates: start: 20210616
  3. IMBRUVICA [Suspect]
     Active Substance: IBRUTINIB
     Dosage: 140 MG, 1X/DAY

REACTIONS (1)
  - Neuropathy peripheral [Not Recovered/Not Resolved]

NARRATIVE: CASE EVENT DATE: 20220601
